FAERS Safety Report 5573916-0 (Version None)
Quarter: 2007Q4

REPORT INFORMATION
  Report Type: 
  Country: None (occurrence: None)
  Receive Date: 20071220
  Receipt Date: 20071217
  Transmission Date: 20080405
  Serious: Yes (Hospitalization, Other)
  Sender: FDA-Public Use
  Company Number: 07122353

PATIENT
  Age: 44 Year
  Sex: Female

DRUGS (2)
  1. CITALOPRAM HYDROBROMIDE [Suspect]
     Indication: DEPRESSION
     Dosage: 400MG, QD, ORAL
     Route: 048
  2. PETHIDINE (MEPERIDINE) [Suspect]
     Indication: PAIN
     Dosage: OTHER
     Route: 050

REACTIONS (4)
  - DEPRESSION [None]
  - ILLUSION [None]
  - PARANOIA [None]
  - SEROTONIN SYNDROME [None]
